FAERS Safety Report 12523745 (Version 10)
Quarter: 2018Q2

REPORT INFORMATION
  Report Type: Report from Study
  Country: BE (occurrence: BE)
  Receive Date: 20160704
  Receipt Date: 20180411
  Transmission Date: 20180711
  Serious: Yes (Hospitalization)
  Sender: FDA-Public Use
  Company Number: BE-ROCHE-1786381

PATIENT
  Age: 71 Year
  Sex: Male

DRUGS (49)
  1. ZANTAC [Concomitant]
     Active Substance: RANITIDINE HYDROCHLORIDE
     Indication: BARRETT^S OESOPHAGUS
     Route: 065
     Dates: start: 20160524, end: 20160626
  2. ZOLPIDEM [Concomitant]
     Active Substance: ZOLPIDEM\ZOLPIDEM TARTRATE
     Dosage: PREVENTION INSOMNIA
     Route: 065
     Dates: start: 20160524, end: 20170426
  3. PERFUSALGAN [Concomitant]
     Active Substance: ACETAMINOPHEN
     Route: 065
     Dates: start: 20161109, end: 20161109
  4. SOLU-MEDROL [Concomitant]
     Active Substance: METHYLPREDNISOLONE SODIUM SUCCINATE
     Dosage: BEFORE EVERY OBINUTUZUMAB ADMINISTRATION
     Route: 065
     Dates: start: 20160914, end: 20160914
  5. DAFALGAN [Concomitant]
     Active Substance: ACETAMINOPHEN
     Indication: MYALGIA
     Dosage: OBINUTUZUMAB INFUSION REACTION
     Route: 065
     Dates: start: 20160622, end: 20160622
  6. STAURODORM [Concomitant]
     Indication: INSOMNIA
     Route: 065
     Dates: start: 20121004, end: 20160523
  7. PANTOMED (PANTOPRAZOLE) [Concomitant]
     Active Substance: PANTOPRAZOLE
     Indication: BARRETT^S OESOPHAGUS
     Route: 065
     Dates: start: 2007, end: 20160523
  8. RAMIPRIL. [Concomitant]
     Active Substance: RAMIPRIL
     Indication: HYPERTENSION
     Route: 065
     Dates: start: 2006, end: 20160706
  9. PERFUSALGAN [Concomitant]
     Active Substance: ACETAMINOPHEN
     Route: 065
     Dates: start: 20160914, end: 20160914
  10. SOLU-MEDROL [Concomitant]
     Active Substance: METHYLPREDNISOLONE SODIUM SUCCINATE
     Dosage: BEFORE EVERY OBINUTUZUMAB ADMINISTRATION
     Route: 065
     Dates: start: 20160706, end: 20160706
  11. TAVEGYL [Concomitant]
     Active Substance: CLEMASTINE FUMARATE
     Dosage: BEFORE EVERY OBINUTUZUMAB ADMINISTRATION
     Route: 065
     Dates: start: 20160720, end: 20160720
  12. PERFUSALGAN [Concomitant]
     Active Substance: ACETAMINOPHEN
     Route: 065
     Dates: start: 20160623, end: 20160623
  13. DAFALGAN [Concomitant]
     Active Substance: ACETAMINOPHEN
     Indication: INFUSION RELATED REACTION
     Route: 065
     Dates: start: 20160601, end: 20180104
  14. VALACICLOVIR [Concomitant]
     Active Substance: VALACYCLOVIR HYDROCHLORIDE
     Route: 065
     Dates: start: 20161103, end: 20161110
  15. MATRIFEN [Concomitant]
     Active Substance: FENTANYL
     Indication: HERPES ZOSTER
     Route: 065
     Dates: start: 20161104, end: 20161113
  16. DEPO-MEDROL [Concomitant]
     Active Substance: METHYLPREDNISOLONE ACETATE
     Dosage: 1 INJECTION ONCE TIME ONLY
     Route: 065
     Dates: start: 20170112, end: 20170112
  17. ZOPICLONE [Concomitant]
     Active Substance: ZOPICLONE
     Dosage: PREVENTION INSOMNIA
     Route: 065
     Dates: start: 20170427, end: 20180311
  18. ZOPICLONE [Concomitant]
     Active Substance: ZOPICLONE
     Dosage: PREVENTION INSOMNIA
     Route: 065
     Dates: start: 20180312
  19. OBINUTUZUMAB. [Suspect]
     Active Substance: OBINUTUZUMAB
     Route: 042
     Dates: start: 20160623, end: 20160623
  20. PERFUSALGAN [Concomitant]
     Active Substance: ACETAMINOPHEN
     Route: 065
     Dates: start: 20160720, end: 20160720
  21. TAVEGYL [Concomitant]
     Active Substance: CLEMASTINE FUMARATE
     Dosage: BEFORE EVERY OBINUTUZUMAB ADMINISTRATION
     Route: 065
     Dates: start: 20160706, end: 20160706
  22. TAVEGYL [Concomitant]
     Active Substance: CLEMASTINE FUMARATE
     Dosage: BEFORE EVERY OBINUTUZUMAB ADMINISTRATION
     Route: 065
     Dates: start: 20160817, end: 20160817
  23. VALACICLOVIR [Concomitant]
     Active Substance: VALACYCLOVIR HYDROCHLORIDE
     Indication: HERPES ZOSTER
     Route: 065
     Dates: start: 20161020, end: 20161102
  24. METFORMIN [Concomitant]
     Active Substance: METFORMIN HYDROCHLORIDE
     Indication: TYPE 2 DIABETES MELLITUS
     Route: 065
     Dates: start: 2002
  25. INEGY [Concomitant]
     Active Substance: EZETIMIBE\SIMVASTATIN
     Indication: HYPERLIPIDAEMIA
     Dosage: 10/80 MG
     Route: 065
     Dates: start: 2006
  26. PERFUSALGAN [Concomitant]
     Active Substance: ACETAMINOPHEN
     Route: 065
     Dates: start: 20160706, end: 20160706
  27. SOLU-MEDROL [Concomitant]
     Active Substance: METHYLPREDNISOLONE SODIUM SUCCINATE
     Dosage: BEFORE EVERY OBINUTUZUMAB ADMINISTRATION
     Route: 065
     Dates: start: 20160622, end: 20160622
  28. SOLU-MEDROL [Concomitant]
     Active Substance: METHYLPREDNISOLONE SODIUM SUCCINATE
     Dosage: BEFORE EVERY OBINUTUZUMAB ADMINISTRATION
     Route: 065
     Dates: start: 20160623, end: 20160623
  29. SOLU-MEDROL [Concomitant]
     Active Substance: METHYLPREDNISOLONE SODIUM SUCCINATE
     Dosage: BEFORE EVERY OBINUTUZUMAB ADMINISTRATION
     Route: 065
     Dates: start: 20160720, end: 20160720
  30. TAVEGYL [Concomitant]
     Active Substance: CLEMASTINE FUMARATE
     Dosage: BEFORE EVERY OBINUTUZUMAB ADMINISTRATION
     Route: 065
     Dates: start: 20161109, end: 20161109
  31. DEPO-MEDROL [Concomitant]
     Active Substance: METHYLPREDNISOLONE ACETATE
     Dosage: 1 INJECTION ONCE TIME ONLY
     Route: 065
     Dates: start: 20161222, end: 20161222
  32. OBINUTUZUMAB. [Suspect]
     Active Substance: OBINUTUZUMAB
     Indication: CHRONIC LYMPHOCYTIC LEUKAEMIA
     Route: 042
     Dates: start: 20160622, end: 20160622
  33. OBINUTUZUMAB. [Suspect]
     Active Substance: OBINUTUZUMAB
     Route: 042
     Dates: start: 20160720, end: 20160720
  34. ZANTAC [Concomitant]
     Active Substance: RANITIDINE HYDROCHLORIDE
     Route: 065
     Dates: start: 20160627, end: 201610
  35. PERFUSALGAN [Concomitant]
     Active Substance: ACETAMINOPHEN
     Route: 065
     Dates: start: 20161012, end: 20161012
  36. SOLU-MEDROL [Concomitant]
     Active Substance: METHYLPREDNISOLONE SODIUM SUCCINATE
     Dosage: BEFORE EVERY OBINUTUZUMAB ADMINISTRATION
     Route: 065
     Dates: start: 20160817, end: 20160817
  37. SOLU-MEDROL [Concomitant]
     Active Substance: METHYLPREDNISOLONE SODIUM SUCCINATE
     Dosage: BEFORE EVERY OBINUTUZUMAB ADMINISTRATION
     Route: 065
     Dates: start: 20161012, end: 20161012
  38. OBINUTUZUMAB. [Suspect]
     Active Substance: OBINUTUZUMAB
     Route: 042
     Dates: start: 20160706, end: 20160706
  39. CIPROXIN [Concomitant]
     Active Substance: CIPROFLOXACIN
     Indication: PROSTATITIS
     Route: 065
     Dates: start: 20160427, end: 20160517
  40. PERFUSALGAN [Concomitant]
     Active Substance: ACETAMINOPHEN
     Dosage: BEFORE EVERY OBINUTUZUMAB ADMINISTRATION
     Route: 065
     Dates: start: 20160622, end: 20160622
  41. PERFUSALGAN [Concomitant]
     Active Substance: ACETAMINOPHEN
     Route: 065
     Dates: start: 20160817, end: 20160817
  42. TAVEGYL [Concomitant]
     Active Substance: CLEMASTINE FUMARATE
     Dosage: BEFORE EVERY OBINUTUZUMAB ADMINISTRATION
     Route: 065
     Dates: start: 20161012, end: 20161012
  43. REDOMEX [Concomitant]
     Active Substance: AMITRIPTYLINE HYDROCHLORIDE
     Indication: HERPES ZOSTER
     Route: 065
     Dates: start: 20161020, end: 20161110
  44. OBINUTUZUMAB. [Suspect]
     Active Substance: OBINUTUZUMAB
     Route: 042
     Dates: start: 20161109, end: 20161109
  45. ACP-196 [Suspect]
     Active Substance: ACALABRUTINIB
     Indication: CHRONIC LYMPHOCYTIC LEUKAEMIA
     Dosage: RECEIVED FIRST DOSE AT 10:20
     Route: 048
     Dates: start: 20160524
  46. TAVEGYL [Concomitant]
     Active Substance: CLEMASTINE FUMARATE
     Dosage: BEFORE EVERY OBINUTUZUMAB ADMINISTRATION
     Route: 065
     Dates: start: 20160622, end: 20160622
  47. TAVEGYL [Concomitant]
     Active Substance: CLEMASTINE FUMARATE
     Dosage: BEFORE EVERY OBINUTUZUMAB ADMINISTRATION
     Route: 065
     Dates: start: 20160623, end: 20160623
  48. TAVEGYL [Concomitant]
     Active Substance: CLEMASTINE FUMARATE
     Dosage: BEFORE EVERY OBINUTUZUMAB ADMINISTRATION
     Route: 065
     Dates: start: 20160914, end: 20160914
  49. UNI DIAMICRON [Concomitant]
     Active Substance: GLICLAZIDE
     Indication: TYPE 2 DIABETES MELLITUS
     Route: 065
     Dates: start: 2002

REACTIONS (3)
  - Hepatitis toxic [Recovered/Resolved]
  - Benign prostatic hyperplasia [Recovered/Resolved]
  - Urinary retention postoperative [Recovered/Resolved]

NARRATIVE: CASE EVENT DATE: 20160627
